FAERS Safety Report 8427367-1 (Version None)
Quarter: 2012Q2

REPORT INFORMATION
  Report Type: 
  Country: None (occurrence: None)
  Receive Date: 20120611
  Receipt Date: 20120531
  Transmission Date: 20120825
  Serious: No
  Sender: FDA-Public Use
  Company Number: US-PFIZER INC-2012131748

PATIENT
  Sex: Female
  Weight: 70 kg

DRUGS (1)
  1. CLEOCIN HYDROCHLORIDE [Suspect]
     Indication: VAGINAL INFECTION
     Dosage: UNK
     Route: 067
     Dates: start: 20120530, end: 20120531

REACTIONS (3)
  - INJURY ASSOCIATED WITH DEVICE [None]
  - DEVICE ISSUE [None]
  - SCRATCH [None]
